FAERS Safety Report 12371485 (Version 2)
Quarter: 2016Q3

REPORT INFORMATION
  Report Type: Spontaneous
  Country: US (occurrence: US)
  Receive Date: 20160516
  Receipt Date: 20160708
  Transmission Date: 20161109
  Serious: No
  Sender: FDA-Public Use
  Company Number: US-TAKEDA-2016MPI003780

PATIENT
  Age: 81 Year
  Sex: Male
  Weight: 77.11 kg

DRUGS (5)
  1. NINLARO [Suspect]
     Active Substance: IXAZOMIB
     Indication: PLASMA CELL MYELOMA
     Dosage: 3 MG, 1/WEEK
     Route: 048
     Dates: start: 201604
  2. CRESTOR [Concomitant]
     Active Substance: ROSUVASTATIN CALCIUM
     Dosage: 20 MG, UNK
  3. DESOXYN [Concomitant]
     Active Substance: METHAMPHETAMINE HYDROCHLORIDE
     Dosage: 1 MG, UNK
  4. ZETIA [Concomitant]
     Active Substance: EZETIMIBE
     Dosage: 5 MG, UNK
  5. AMLODIPINE [Concomitant]
     Active Substance: AMLODIPINE BESYLATE
     Dosage: 5 MG, UNK

REACTIONS (3)
  - Drug dose omission [Unknown]
  - Product packaging issue [Unknown]
  - Off label use [Unknown]

NARRATIVE: CASE EVENT DATE: 201604
